FAERS Safety Report 10521743 (Version 5)
Quarter: 2014Q4

REPORT INFORMATION
  Report Type: Spontaneous
  Country: DK (occurrence: DK)
  Receive Date: 20141016
  Receipt Date: 20141114
  Transmission Date: 20150528
  Serious: Yes (Other)
  Sender: FDA-Public Use
  Company Number: PHHY2014DK124464

PATIENT
  Age: 32 Year
  Sex: Female

DRUGS (14)
  1. CASPOFUNGIN ACETATE [Suspect]
     Active Substance: CASPOFUNGIN ACETATE
     Indication: CANDIDA INFECTION
     Dosage: 50 MG, UNK
     Route: 065
  2. 5-FLUOROCYTOSINE [Concomitant]
     Dosage: 3500 MG, CORRESPONDING TO APPROX. 50 MG/KG
     Route: 065
  3. FLUCONAZOLE. [Suspect]
     Active Substance: FLUCONAZOLE
     Dosage: 600 MG, QD
     Route: 065
  4. AMBISOME [Suspect]
     Active Substance: AMPHOTERICIN B
     Dosage: 4 MG/KG, UNK
     Route: 065
  5. AMBISOME [Suspect]
     Active Substance: AMPHOTERICIN B
     Dosage: 2 MG/KG, UNK
     Route: 065
  6. FLUCONAZOLE. [Suspect]
     Active Substance: FLUCONAZOLE
     Indication: CANDIDA INFECTION
     Dosage: 200 MG, QD
     Route: 065
  7. AMBISOME [Suspect]
     Active Substance: AMPHOTERICIN B
     Dosage: 5 MG/KG, QD
     Route: 065
  8. AMBISOME [Suspect]
     Active Substance: AMPHOTERICIN B
     Dosage: 4 MG/KG, QD
     Route: 065
  9. CASPOFUNGIN ACETATE [Suspect]
     Active Substance: CASPOFUNGIN ACETATE
     Dosage: 70 MG AS LOADING DOSE
     Route: 065
  10. 5-FLUOROCYTOSINE [Concomitant]
     Indication: CANDIDA INFECTION
     Dosage: 3500 MG, UNK
     Route: 065
  11. FLUCONAZOLE. [Suspect]
     Active Substance: FLUCONAZOLE
     Dosage: 400 UNK, UNK
     Route: 065
  12. AMBISOME [Suspect]
     Active Substance: AMPHOTERICIN B
     Indication: CANDIDA INFECTION
     Dosage: 6 MG/KG, QD
     Route: 065
  13. CASPOFUNGIN ACETATE [Suspect]
     Active Substance: CASPOFUNGIN ACETATE
     Dosage: 70 MG, UNK
     Route: 065
  14. AMBISOME [Suspect]
     Active Substance: AMPHOTERICIN B
     Dosage: 4 MG/KG, QD
     Route: 065

REACTIONS (1)
  - Treatment failure [Recovered/Resolved]
